FAERS Safety Report 18077816 (Version 1)
Quarter: 2020Q3

REPORT INFORMATION
  Report Type: Spontaneous
  Country: US (occurrence: US)
  Receive Date: 20200728
  Receipt Date: 20200728
  Transmission Date: 20201103
  Serious: No
  Sender: FDA-Public Use
  Company Number: US-ASTRAZENECA-2020SE93975

PATIENT
  Age: 64 Year
  Sex: Male

DRUGS (6)
  1. SYMBICORT [Concomitant]
     Active Substance: BUDESONIDE\FORMOTEROL FUMARATE DIHYDRATE
     Dosage: UNKNOWN
  2. DALIRESP [Suspect]
     Active Substance: ROFLUMILAST
     Dosage: 250.0MG UNKNOWN
     Route: 048
  3. DALIRESP [Suspect]
     Active Substance: ROFLUMILAST
     Dosage: 250.0MG UNKNOWN
     Route: 048
  4. HYDROCODONE [Concomitant]
     Active Substance: HYDROCODONE
     Dosage: UNKNOWN
     Route: 065
  5. DALIRESP [Suspect]
     Active Substance: ROFLUMILAST
     Dosage: 500.0MG UNKNOWN
     Route: 048
  6. XANAX [Concomitant]
     Active Substance: ALPRAZOLAM
     Dosage: UNKNOWN
     Route: 065

REACTIONS (1)
  - Rash [Unknown]
